FAERS Safety Report 8242114-4 (Version None)
Quarter: 2012Q1

REPORT INFORMATION
  Report Type: 
  Country: None (occurrence: None)
  Receive Date: 20120314
  Receipt Date: 20100602
  Transmission Date: 20120608
  Serious: No
  Sender: FDA-Public Use
  Company Number: PHHY2010US36114

PATIENT
  Age: 43 Year
  Sex: Female

DRUGS (3)
  1. FANAPT [Suspect]
     Dosage: 6 MG, BID, ORAL; 3 MG, BID, ORAL
     Route: 048
     Dates: start: 20100528, end: 20100602
  2. EFEXOR XR (VENLAFAXINE) [Concomitant]
  3. ZOLPIDEM [Concomitant]

REACTIONS (1)
  - EYELID PTOSIS [None]
